FAERS Safety Report 8788185 (Version 1)
Quarter: 2012Q4

REPORT INFORMATION
  Report Type: Report from Study
  Country: US (occurrence: US)
  Receive Date: 20120914
  Receipt Date: 20120914
  Transmission Date: 20130627
  Serious: No
  Sender: FDA-Public Use
  Company Number: US-VERTEX PHARMACEUTICAL INC.-AE-2012-011621

PATIENT
  Age: 55 Year
  Sex: Female
  Weight: 56.82 kg

DRUGS (6)
  1. INCIVEK [Suspect]
     Indication: HEPATITIS C
     Route: 048
     Dates: start: 20120728
  2. PEGINTRON [Concomitant]
     Indication: HEPATITIS C
     Route: 058
     Dates: start: 20120728
  3. RIBAVIRIN [Concomitant]
     Indication: HEPATITIS C
     Route: 048
     Dates: start: 20120728
  4. HUMALOG INSULIN [Concomitant]
     Indication: DIABETES MELLITUS
     Route: 048
  5. CELEXA [Concomitant]
     Route: 048
  6. REMERON [Concomitant]
     Route: 048

REACTIONS (1)
  - Nausea [Not Recovered/Not Resolved]
